FAERS Safety Report 19769159 (Version 1)
Quarter: 2021Q3

REPORT INFORMATION
  Report Type: Spontaneous
  Country: US (occurrence: US)
  Receive Date: 20210826
  Receipt Date: 20210826
  Transmission Date: 20211014
  Serious: Yes (Death)
  Sender: FDA-Public Use
  Company Number: None

PATIENT
  Age: 42 Year
  Sex: Female

DRUGS (2)
  1. TADALAFIL 20MG TAB 60/BO (DR.REDDY): [Suspect]
     Active Substance: TADALAFIL
     Indication: PULMONARY ARTERIAL HYPERTENSION
     Route: 048
     Dates: start: 20191211, end: 20210825
  2. TADALAFIL 20MG TAB 60/BO (DR.REDDY): [Suspect]
     Active Substance: TADALAFIL
     Indication: HERITABLE PULMONARY ARTERIAL HYPERTENSION
     Route: 048
     Dates: start: 20191211, end: 20210825

REACTIONS (5)
  - Dyspnoea [None]
  - Disease complication [None]
  - Syncope [None]
  - Abdominal pain [None]
  - Transaminases increased [None]

NARRATIVE: CASE EVENT DATE: 20210825
